FAERS Safety Report 6686187-9 (Version None)
Quarter: 2010Q2

REPORT INFORMATION
  Report Type: 
  Country: None (occurrence: None)
  Receive Date: 20100419
  Receipt Date: 20100415
  Transmission Date: 20101027
  Serious: Yes (Other)
  Sender: FDA-Public Use
  Company Number: JP-ROXANE LABORATORIES, INC.-2010-RO-00428RO

PATIENT
  Age: 32 Year
  Sex: Female

DRUGS (16)
  1. DEXAMETHASONE [Suspect]
     Indication: INTERVERTEBRAL DISC PROTRUSION
     Dosage: 8 MG
     Route: 008
  2. DEXAMETHASONE [Suspect]
     Indication: PAIN
  3. ROPIVACAINE HYDROCHLORIDE [Suspect]
     Indication: INTERVERTEBRAL DISC PROTRUSION
     Route: 008
  4. ROPIVACAINE HYDROCHLORIDE [Suspect]
     Indication: PAIN
  5. AMITRIPTYLINE [Suspect]
     Indication: INTERVERTEBRAL DISC PROTRUSION
     Dosage: 30 MG
     Route: 048
  6. AMITRIPTYLINE [Suspect]
     Indication: PAIN
     Dosage: 60 MG
     Route: 048
  7. MORPHINE [Concomitant]
     Indication: INTERVERTEBRAL DISC PROTRUSION
     Route: 048
  8. MORPHINE [Concomitant]
     Indication: PAIN
     Route: 048
  9. MORPHINE [Concomitant]
     Indication: BREAKTHROUGH PAIN
     Dosage: 240 MG
     Route: 048
  10. MORPHINE [Concomitant]
     Dosage: 90 MG
     Route: 048
  11. FENTANYL [Concomitant]
     Indication: INTERVERTEBRAL DISC PROTRUSION
     Route: 062
  12. FENTANYL [Concomitant]
     Indication: PAIN
  13. MEPIVACAINE [Concomitant]
     Indication: INTERVERTEBRAL DISC PROTRUSION
     Dosage: 0.15 MG
     Route: 008
  14. MEPIVACAINE [Concomitant]
     Indication: PAIN
  15. ACETAMINOPHEN [Concomitant]
     Indication: INTERVERTEBRAL DISC PROTRUSION
     Dosage: 400 MG
     Route: 048
  16. ACETAMINOPHEN [Concomitant]
     Indication: PAIN

REACTIONS (5)
  - CONDITION AGGRAVATED [None]
  - DRUG EXPOSURE DURING PREGNANCY [None]
  - PAIN [None]
  - PREMATURE LABOUR [None]
  - SENSORY LOSS [None]
